FAERS Safety Report 8341771-1 (Version None)
Quarter: 2012Q2

REPORT INFORMATION
  Report Type: 
  Country: None (occurrence: None)
  Receive Date: 20120507
  Receipt Date: 20120423
  Transmission Date: 20120825
  Serious: Yes (Hospitalization)
  Sender: FDA-Public Use
  Company Number: BR-ELI_LILLY_AND_COMPANY-BR201204008144

PATIENT
  Sex: Female

DRUGS (3)
  1. LYRICA [Concomitant]
     Indication: FIBROMYALGIA
     Dosage: 75 MG, QD
  2. LYRICA [Concomitant]
     Dosage: 75 MG, BID
     Route: 065
  3. CYMBALTA [Suspect]
     Indication: FIBROMYALGIA
     Dosage: 60 MG, UNKNOWN
     Route: 065
     Dates: start: 20110101

REACTIONS (2)
  - HEPATITIS [None]
  - DRUG INTERACTION [None]
